FAERS Safety Report 6313714-3 (Version None)
Quarter: 2009Q3

REPORT INFORMATION
  Report Type: 
  Country: None (occurrence: None)
  Receive Date: 20090818
  Receipt Date: 19991104
  Transmission Date: 20100115
  Serious: No
  Sender: FDA-Public Use
  Company Number: 10006302

PATIENT
  Age: 27 Year
  Sex: Female

DRUGS (4)
  1. ZERIT [Suspect]
     Indication: HIV INFECTION
     Route: 048
     Dates: start: 19980801, end: 19990301
  2. VIRACEPT [Suspect]
     Indication: HIV INFECTION
     Dosage: THERAPY FROM AUGUST 1998 - MARCH 1999, THEN RESTARTED APRIL 10, 1999
     Route: 048
     Dates: start: 19980801
  3. EPIVIR [Suspect]
     Indication: HIV INFECTION
     Route: 048
     Dates: start: 19980801, end: 19990119
  4. COMBIVIR [Suspect]
     Indication: HIV INFECTION
     Dosage: THERAPY FROM JANUARY 19, 1999 - MARCH 1999, THEN RESTARTED APRIL 10, 1999
     Route: 048
     Dates: start: 19990119

REACTIONS (2)
  - NORMAL NEWBORN [None]
  - PREGNANCY [None]
